FAERS Safety Report 14504194 (Version 2)
Quarter: 2018Q2

REPORT INFORMATION
  Report Type: Spontaneous
  Country: US (occurrence: US)
  Receive Date: 20180208
  Receipt Date: 20180424
  Transmission Date: 20180711
  Serious: No
  Sender: FDA-Public Use
  Company Number: US-JNJFOC-20171229310

PATIENT
  Age: 62 Year
  Sex: Female
  Weight: 72.12 kg

DRUGS (2)
  1. MENS ROGAINE EXTRA STRENGTH [Suspect]
     Active Substance: MINOXIDIL
     Route: 061
  2. MENS ROGAINE EXTRA STRENGTH [Suspect]
     Active Substance: MINOXIDIL
     Indication: ALOPECIA
     Dosage: ABOUT 1/2 CAP
     Route: 061
     Dates: start: 20171218, end: 20171220

REACTIONS (7)
  - Product use in unapproved indication [Unknown]
  - Trichorrhexis [Recovering/Resolving]
  - Overdose [Unknown]
  - Product use issue [Unknown]
  - Product formulation issue [Unknown]
  - Alopecia [Recovering/Resolving]
  - Off label use [Unknown]

NARRATIVE: CASE EVENT DATE: 20171218
